FAERS Safety Report 15624580 (Version 1)
Quarter: 2018Q4

REPORT INFORMATION
  Report Type: Spontaneous
  Country: BR (occurrence: BR)
  Receive Date: 20181116
  Receipt Date: 20181116
  Transmission Date: 20190205
  Serious: Yes (Other)
  Sender: FDA-Public Use
  Company Number: BR-ABBVIE-18K-020-2556555-00

PATIENT
  Sex: Male

DRUGS (2)
  1. HUMIRA [Suspect]
     Active Substance: ADALIMUMAB
     Indication: ANKYLOSING SPONDYLITIS
     Route: 058
     Dates: start: 201711
  2. TORSILAX [Concomitant]
     Active Substance: ACETAMINOPHEN\CAFFEINE\CARISOPRODOL\DICLOFENAC
     Indication: PAIN
     Route: 048
     Dates: start: 2017

REACTIONS (2)
  - Impaired work ability [Unknown]
  - Pain [Unknown]
